FAERS Safety Report 9346315 (Version 4)
Quarter: 2014Q1

REPORT INFORMATION
  Report Type: Report from Study
  Country: AU (occurrence: AU)
  Receive Date: 20130613
  Receipt Date: 20140212
  Transmission Date: 20141002
  Serious: Yes (Hospitalization)
  Sender: FDA-Public Use
  Company Number: AU-ROCHE-1232129

PATIENT
  Age: 46 Year
  Sex: Female
  Weight: 76 kg

DRUGS (12)
  1. TRASTUZUMAB EMTANSINE [Suspect]
     Indication: BREAST CANCER
     Dosage: DATE OF LAST DOSE PRIOR TO THROMBUS IN RIGHT INTERNAL JUGULAR VEIN: 16/MAY/2013?DATE OF LAST DOSE PR
     Route: 042
     Dates: start: 20130402, end: 20130723
  2. CLEXANE [Suspect]
     Indication: JUGULAR VEIN THROMBOSIS
     Route: 065
     Dates: start: 20130602
  3. TRASTUZUMAB [Suspect]
     Indication: PRODUCT USED FOR UNKNOWN INDICATION
     Route: 065
     Dates: start: 20130402
  4. DUROGESIC [Concomitant]
     Route: 065
     Dates: start: 20130508
  5. ALVESCO [Concomitant]
     Route: 065
     Dates: start: 2012
  6. NEXIUM [Concomitant]
     Route: 065
     Dates: start: 201302
  7. SALINE FLUSH 0.9% [Concomitant]
     Route: 065
     Dates: start: 20130602, end: 20130602
  8. ABRAXANE [Concomitant]
     Route: 065
     Dates: start: 20130806
  9. GEMZAR [Concomitant]
     Route: 065
     Dates: start: 20130806
  10. DEXAMETHASONE [Concomitant]
  11. ESOMEPRAZOLE MAGNESIUM TRIHYDRATE [Concomitant]
  12. CICLESONIDE [Concomitant]

REACTIONS (2)
  - Jugular vein thrombosis [Recovered/Resolved]
  - Disease progression [Unknown]
